FAERS Safety Report 8561467-0 (Version None)
Quarter: 2012Q3

REPORT INFORMATION
  Report Type: 
  Country: None (occurrence: None)
  Receive Date: 20120802
  Receipt Date: 20120726
  Transmission Date: 20120928
  Serious: Yes (Hospitalization)
  Sender: FDA-Public Use
  Company Number: US-US-EMD SERONO, INC.-7059228

PATIENT
  Sex: Male
  Weight: 170 kg

DRUGS (5)
  1. METFORMIN HYDROCHLORIDE [Concomitant]
     Indication: DIABETES MELLITUS
  2. HYDROCODONE [Concomitant]
     Indication: BACK PAIN
  3. INSULIN [Concomitant]
     Indication: DIABETES MELLITUS
  4. UNSPECIFIED BLOOD PRESSURE MEDICATION [Concomitant]
     Indication: HYPERTENSION
  5. REBIF [Suspect]
     Indication: MULTIPLE SCLEROSIS
     Route: 058
     Dates: start: 20070417

REACTIONS (2)
  - INJECTION SITE ERYTHEMA [None]
  - INTERVERTEBRAL DISC COMPRESSION [None]
